FAERS Safety Report 22040391 (Version 1)
Quarter: 2023Q1

REPORT INFORMATION
  Report Type: Other
  Country: CA (occurrence: CA)
  Receive Date: 20230227
  Receipt Date: 20230227
  Transmission Date: 20230418
  Serious: Yes (Life-Threatening, Hospitalization, Other)
  Sender: FDA-Public Use
  Company Number: CA-APOTEX-2023AP003894

PATIENT
  Age: 20 Year
  Sex: Male

DRUGS (5)
  1. METOCLOPRAMIDE [Suspect]
     Active Substance: METOCLOPRAMIDE
     Indication: Suicide attempt
     Dosage: UNK
     Route: 065
  2. METOCLOPRAMIDE [Suspect]
     Active Substance: METOCLOPRAMIDE
     Indication: Antiemetic supportive care
  3. FAMOTIDINE [Suspect]
     Active Substance: FAMOTIDINE
     Indication: Suicide attempt
     Dosage: UNK
     Route: 065
  4. FAMOTIDINE [Suspect]
     Active Substance: FAMOTIDINE
     Indication: Antiemetic supportive care
  5. SODIUM NITRITE [Suspect]
     Active Substance: SODIUM NITRITE
     Indication: Suicide attempt
     Dosage: 21 GRAM
     Route: 048

REACTIONS (4)
  - Coma [Recovered/Resolved]
  - Suicide attempt [Recovered/Resolved]
  - Cyanosis [Recovered/Resolved]
  - Methaemoglobinaemia [Recovered/Resolved]
